FAERS Safety Report 12815430 (Version 1)
Quarter: 2016Q4

REPORT INFORMATION
  Report Type: Spontaneous
  Country: US (occurrence: US)
  Receive Date: 20161005
  Receipt Date: 20161005
  Transmission Date: 20170207
  Serious: No
  Sender: FDA-Public Use
  Company Number: US-G+W LABS-GW2016US000148

PATIENT

DRUGS (1)
  1. QUINIDINE SULFATE. [Suspect]
     Active Substance: QUINIDINE SULFATE
     Indication: PRODUCT USED FOR UNKNOWN INDICATION
     Route: 065

REACTIONS (2)
  - Rash erythematous [Unknown]
  - Drug hypersensitivity [Unknown]
